FAERS Safety Report 9259593 (Version 3)
Quarter: 2014Q1

REPORT INFORMATION
  Report Type: Spontaneous
  Country: US (occurrence: US)
  Receive Date: 20130429
  Receipt Date: 20140124
  Transmission Date: 20141002
  Serious: Yes (Hospitalization, Other)
  Sender: FDA-Public Use
  Company Number: US-ASTRAZENECA-2013SE27443

PATIENT
  Age: 623 Month
  Sex: Female
  Weight: 68 kg

DRUGS (17)
  1. NEXIUM [Suspect]
     Indication: GASTRIC DISORDER
     Dosage: ONCE A DAY
     Route: 048
     Dates: start: 2007, end: 2011
  2. NEXIUM [Suspect]
     Indication: GASTRIC DISORDER
     Route: 048
     Dates: start: 2007
  3. PREVACID [Concomitant]
  4. ZANTAC [Concomitant]
  5. TAGAMET [Concomitant]
  6. PEPCID [Concomitant]
     Indication: HYPOAESTHESIA
  7. TUMS [Concomitant]
  8. ALKA SELTZER [Concomitant]
  9. ROLAIDS [Concomitant]
  10. MYLANTA [Concomitant]
  11. MILK OF MAGNESIA [Concomitant]
  12. AMITRIPTYLINE [Concomitant]
     Indication: SLEEP DISORDER
  13. BISACODYL [Concomitant]
  14. TEMAZEPAM [Concomitant]
     Indication: DIARRHOEA
  15. LOTREL [Concomitant]
     Indication: SLEEP DISORDER
  16. OXYCODONE [Concomitant]
     Indication: PAIN
  17. XANAX [Concomitant]

REACTIONS (12)
  - Intervertebral disc protrusion [Unknown]
  - Back disorder [Unknown]
  - Lumbar radiculopathy [Unknown]
  - Osteoporosis [Unknown]
  - Bone disorder [Unknown]
  - Rib fracture [Unknown]
  - Carpal tunnel syndrome [Unknown]
  - Fall [Unknown]
  - Hypoaesthesia [Unknown]
  - Arthritis [Unknown]
  - Osteopenia [Unknown]
  - Depression [Unknown]
